FAERS Safety Report 6011783-1 (Version None)
Quarter: 2008Q4

REPORT INFORMATION
  Report Type: 
  Country: None (occurrence: None)
  Receive Date: 20081218
  Receipt Date: 20081210
  Transmission Date: 20090506
  Serious: Yes (Hospitalization, Other)
  Sender: FDA-Public Use
  Company Number: US-ABBOTT-08P-163-0487024-00

PATIENT
  Sex: Male
  Weight: 105.33 kg

DRUGS (5)
  1. HUMIRA [Suspect]
     Indication: PSORIATIC ARTHROPATHY
     Route: 058
     Dates: start: 20050701, end: 20080801
  2. HUMIRA [Suspect]
     Route: 058
     Dates: start: 20080101, end: 20080807
  3. HUMIRA [Suspect]
     Route: 058
     Dates: start: 20080807, end: 20081001
  4. PROPRANOLOL [Concomitant]
     Indication: HYPERTENSION
  5. VALSARTAN [Concomitant]
     Indication: HYPERTENSION

REACTIONS (3)
  - DEMYELINATION [None]
  - MYOSCLEROSIS [None]
  - SPEECH DISORDER [None]
